FAERS Safety Report 23356624 (Version 1)
Quarter: 2024Q1

REPORT INFORMATION
  Report Type: Spontaneous
  Country: DE (occurrence: DE)
  Receive Date: 20240102
  Receipt Date: 20240102
  Transmission Date: 20240410
  Serious: Yes (Hospitalization)
  Sender: FDA-Public Use
  Company Number: DE-DCGMA-23202538

PATIENT
  Age: 47 Year
  Sex: Female
  Weight: 70 kg

DRUGS (13)
  1. OCRELIZUMAB [Suspect]
     Active Substance: OCRELIZUMAB
     Indication: Relapsing-remitting multiple sclerosis
     Route: 065
     Dates: start: 202104
  2. OMEPRAZOLE [Concomitant]
     Active Substance: OMEPRAZOLE
     Indication: Abdominal discomfort
  3. SERTRALINE [Concomitant]
     Active Substance: SERTRALINE HYDROCHLORIDE
  4. POLYETHYLENE GLYCOLS [Concomitant]
     Active Substance: POLYETHYLENE GLYCOLS
     Indication: Intestinal obstruction
  5. HYDROMORPHONE [Concomitant]
     Active Substance: HYDROMORPHONE
     Indication: Pain
  6. CLONIDINE [Concomitant]
     Active Substance: CLONIDINE
     Indication: Hypertension
  7. DOMPERIDONE [Concomitant]
     Active Substance: DOMPERIDONE
     Indication: Nausea
  8. FLUTICASONE PROPIONATE\SALMETEROL XINAFOATE [Concomitant]
     Active Substance: FLUTICASONE PROPIONATE\SALMETEROL XINAFOATE
     Dosage: 2X2 STROBE
  9. TIANEPTINE SODIUM [Concomitant]
     Active Substance: TIANEPTINE SODIUM
  10. PIRACETAM [Concomitant]
     Active Substance: PIRACETAM
     Indication: Cognitive disorder
  11. DICLOFENAC [Concomitant]
     Active Substance: DICLOFENAC
  12. LACTULOSE [Concomitant]
     Active Substance: LACTULOSE
     Indication: Intestinal obstruction
  13. GABAPENTIN [Concomitant]
     Active Substance: GABAPENTIN
     Dates: start: 2018

REACTIONS (2)
  - Pneumonia [Not Recovered/Not Resolved]
  - Infectious pleural effusion [Not Recovered/Not Resolved]

NARRATIVE: CASE EVENT DATE: 20231007
